FAERS Safety Report 5808700-3 (Version None)
Quarter: 2008Q3

REPORT INFORMATION
  Report Type: 
  Country: None (occurrence: None)
  Receive Date: 20080709
  Receipt Date: 20080709
  Transmission Date: 20090109
  Serious: Yes (Disabling)
  Sender: FDA-Public Use
  Company Number: None

PATIENT
  Sex: Female

DRUGS (3)
  1. MARCAINE HYDROCHLORIDE W/ EPINEPHRINE [Suspect]
     Indication: ARTHROPATHY
     Dosage: 120CC 2.08 CC/HR 014
     Dates: start: 20020520, end: 20020522
  2. STRYKER PAIN PUMP [Concomitant]
  3. MARCAINE HYDROCHLORIDE W/ EPINEPHRINE [Suspect]
     Indication: PERIARTHRITIS
     Dosage: UNKNOWN 48 HOURS DOSAGE 014
     Dates: start: 20021007, end: 20021009

REACTIONS (3)
  - CHONDROMALACIA [None]
  - OSTEOARTHRITIS [None]
  - PERIARTHRITIS [None]
